FAERS Safety Report 25629584 (Version 1)
Quarter: 2025Q3

REPORT INFORMATION
  Report Type: Spontaneous
  Country: EU (occurrence: EU)
  Receive Date: 20250731
  Receipt Date: 20250731
  Transmission Date: 20251020
  Serious: Yes (Hospitalization)
  Sender: NOVO NORDISK
  Company Number: None

PATIENT
  Age: 29 Year
  Sex: Female
  Weight: 128 kg

DRUGS (2)
  1. RYBELSUS [Interacting]
     Active Substance: SEMAGLUTIDE
     Indication: Product used for unknown indication
  2. LITHIUM SULFATE [Interacting]
     Active Substance: LITHIUM SULFATE
     Indication: Bipolar disorder
     Dates: start: 20180919

REACTIONS (3)
  - Drug interaction [Not Recovered/Not Resolved]
  - Antipsychotic drug level increased [Not Recovered/Not Resolved]
  - Toxicity to various agents [Not Recovered/Not Resolved]

NARRATIVE: CASE EVENT DATE: 20250701
